FAERS Safety Report 11870709 (Version 1)
Quarter: 2015Q4

REPORT INFORMATION
  Report Type: Spontaneous
  Country: GR (occurrence: GR)
  Receive Date: 20151228
  Receipt Date: 20151228
  Transmission Date: 20160305
  Serious: Yes (Other)
  Sender: FDA-Public Use
  Company Number: GR-AMGEN-GRCSP2015137931

PATIENT
  Sex: Female

DRUGS (2)
  1. PROLIA [Suspect]
     Active Substance: DENOSUMAB
     Indication: PRODUCT USED FOR UNKNOWN INDICATION
     Dosage: UNK
     Route: 065
  2. IDEOS [Concomitant]
     Active Substance: CALCIUM CARBONATE\CHOLECALCIFEROL

REACTIONS (7)
  - Pruritus generalised [Unknown]
  - Chemical cystitis [Unknown]
  - Nephrolithiasis [Unknown]
  - Cataract [Unknown]
  - Angioedema [Unknown]
  - Tachyarrhythmia [Unknown]
  - Haematuria [Unknown]
